FAERS Safety Report 18546603 (Version 1)
Quarter: 2020Q4

REPORT INFORMATION
  Report Type: Spontaneous
  Country: US (occurrence: US)
  Receive Date: 20201125
  Receipt Date: 20201125
  Transmission Date: 20210114
  Serious: Yes (Other)
  Sender: FDA-Public Use
  Company Number: US-ASTRAZENECA-2020SF54016

PATIENT
  Age: 29923 Day
  Sex: Female
  Weight: 66.7 kg

DRUGS (3)
  1. TAGRISSO [Suspect]
     Active Substance: OSIMERTINIB
     Indication: LUNG NEOPLASM MALIGNANT
     Route: 048
  2. TAGRISSO [Suspect]
     Active Substance: OSIMERTINIB
     Indication: LUNG NEOPLASM MALIGNANT
     Dosage: 80 MG EVERY OTHER DAY ALTERNATING WITH 40 MG DOSE
     Route: 048
  3. TAGRISSO [Suspect]
     Active Substance: OSIMERTINIB
     Indication: LUNG NEOPLASM MALIGNANT
     Route: 048

REACTIONS (6)
  - Malignant neoplasm progression [Not Recovered/Not Resolved]
  - Confusional state [Unknown]
  - Metamorphopsia [Unknown]
  - Headache [Unknown]
  - Nail disorder [Unknown]
  - Rash [Unknown]

NARRATIVE: CASE EVENT DATE: 20201116
